APPROVED DRUG PRODUCT: REXTOVY
Active Ingredient: NALOXONE HYDROCHLORIDE
Strength: 4MG/SPRAY
Dosage Form/Route: SPRAY, METERED;NASAL
Application: N208969 | Product #001
Applicant: AMPHASTAR PHARMACEUTICALS INC
Approved: Mar 7, 2023 | RLD: Yes | RS: Yes | Type: RX

EXCLUSIVITY:
Code: NP | Date: Mar 7, 2026